FAERS Safety Report 23589139 (Version 9)
Quarter: 2025Q4

REPORT INFORMATION
  Report Type: Report from Study
  Country: US (occurrence: US)
  Receive Date: 20240303
  Receipt Date: 20251124
  Transmission Date: 20260118
  Serious: Yes (Hospitalization, Other)
  Sender: ABBVIE
  Company Number: US-ABBVIE-5658158

PATIENT
  Age: 76 Year
  Sex: Female

DRUGS (4)
  1. HUMIRA [Suspect]
     Active Substance: ADALIMUMAB
     Indication: Crohn^s disease
     Route: 058
     Dates: start: 20140818
  2. HUMIRA [Suspect]
     Active Substance: ADALIMUMAB
     Route: 058
  3. HUMIRA [Suspect]
     Active Substance: ADALIMUMAB
     Route: 058
     Dates: start: 20240818
  4. HYDROCODONE [Suspect]
     Active Substance: HYDROCODONE
     Indication: Product used for unknown indication
     Route: 065

REACTIONS (11)
  - Gastrointestinal wall thinning [Recovering/Resolving]
  - Pruritus [Not Recovered/Not Resolved]
  - Joint range of motion decreased [Recovering/Resolving]
  - Shoulder operation [Not Recovered/Not Resolved]
  - Gastrointestinal disorder [Recovered/Resolved with Sequelae]
  - Drug hypersensitivity [Not Recovered/Not Resolved]
  - Musculoskeletal stiffness [Recovering/Resolving]
  - Sciatica [Not Recovered/Not Resolved]
  - Discomfort [Unknown]
  - Joint swelling [Not Recovered/Not Resolved]
  - Intestinal stenosis [Unknown]

NARRATIVE: CASE EVENT DATE: 20231201
